FAERS Safety Report 9913878 (Version 2)
Quarter: 2014Q2

REPORT INFORMATION
  Report Type: Spontaneous
  Country: AU (occurrence: AU)
  Receive Date: 20140220
  Receipt Date: 20140507
  Transmission Date: 20141212
  Serious: Yes (Disabling)
  Sender: FDA-Public Use
  Company Number: AU-ABBVIE-14P-008-1204118-00

PATIENT
  Age: 53 Year
  Sex: Female
  Weight: 64 kg

DRUGS (1)
  1. LIPIDIL [Suspect]
     Indication: METABOLIC DISORDER
     Route: 048
     Dates: start: 20121212, end: 20121225

REACTIONS (5)
  - Somnolence [Recovered/Resolved]
  - Myalgia [Recovered/Resolved]
  - Lethargy [Recovered/Resolved]
  - Muscular weakness [Recovered/Resolved]
  - Arthralgia [Recovered/Resolved]
